FAERS Safety Report 24464432 (Version 1)
Quarter: 2024Q4

REPORT INFORMATION
  Report Type: Report from Study
  Country: US (occurrence: US)
  Receive Date: 20241018
  Receipt Date: 20241018
  Transmission Date: 20250115
  Serious: No
  Sender: ROCHE
  Company Number: US-ROCHE-3502462

PATIENT
  Age: 39 Year
  Sex: Male
  Weight: 74.39 kg

DRUGS (6)
  1. XOLAIR [Suspect]
     Active Substance: OMALIZUMAB
     Indication: Urticaria chronic
     Dosage: LAST INJECTION RECEIVED ON 17/JAN/2024.
     Route: 058
  2. XOLAIR [Suspect]
     Active Substance: OMALIZUMAB
     Indication: Idiopathic urticaria
  3. XOLAIR [Suspect]
     Active Substance: OMALIZUMAB
     Indication: Urticaria
  4. BENADRYL [Concomitant]
     Active Substance: DIPHENHYDRAMINE HYDROCHLORIDE
  5. EPIPEN [Concomitant]
     Active Substance: EPINEPHRINE
  6. NASONEX [Concomitant]
     Active Substance: MOMETASONE FUROATE

REACTIONS (5)
  - Urticaria [Unknown]
  - Erythema [Unknown]
  - Pruritus [Unknown]
  - Lacrimation increased [Unknown]
  - Nasal congestion [Unknown]
